FAERS Safety Report 4713183-0 (Version None)
Quarter: 2005Q3

REPORT INFORMATION
  Report Type: 
  Country: None (occurrence: None)
  Receive Date: 20050701
  Receipt Date: 20041123
  Transmission Date: 20060218
  Serious: Yes (Other)
  Sender: FDA-Public Use
  Company Number: US-SHR-04-023974

PATIENT
  Age: 34 Year
  Sex: Female
  Weight: 81.6 kg

DRUGS (2)
  1. YASMIN [Suspect]
     Indication: ORAL CONTRACEPTION
     Dosage: 1 TAB(S), 1X/DAY , ORAL
     Route: 048
     Dates: start: 20021201, end: 20040406
  2. MULTIVITAMINS (PANTHENOL, RETINOL) [Concomitant]

REACTIONS (1)
  - DEEP VEIN THROMBOSIS [None]
